FAERS Safety Report 14688074 (Version 3)
Quarter: 2019Q2

REPORT INFORMATION
  Report Type: Spontaneous
  Country: US (occurrence: US)
  Receive Date: 20180328
  Receipt Date: 20190612
  Transmission Date: 20190711
  Serious: No
  Sender: FDA-Public Use
  Company Number: US-PFIZER INC-2018127743

PATIENT
  Age: 37 Year
  Sex: Female
  Weight: 104 kg

DRUGS (3)
  1. LYRICA [Suspect]
     Active Substance: PREGABALIN
     Indication: COMPLEX REGIONAL PAIN SYNDROME
     Dosage: 150 MG, 3X/DAY
     Route: 048
     Dates: start: 201103
  2. LYRICA [Suspect]
     Active Substance: PREGABALIN
     Indication: PAIN
  3. EFFEXOR [Suspect]
     Active Substance: VENLAFAXINE HYDROCHLORIDE
     Indication: PAIN
     Dosage: 150 MG, 1X/DAY
     Route: 048
     Dates: start: 201103, end: 2013

REACTIONS (4)
  - Sinusitis [Not Recovered/Not Resolved]
  - Off label use [Unknown]
  - Dysphonia [Not Recovered/Not Resolved]
  - Product use in unapproved indication [Unknown]

NARRATIVE: CASE EVENT DATE: 201103
